FAERS Safety Report 10377196 (Version 4)
Quarter: 2015Q3

REPORT INFORMATION
  Report Type: Report from Study
  Country: US (occurrence: US)
  Receive Date: 20140812
  Receipt Date: 20150720
  Transmission Date: 20151125
  Serious: Yes (Hospitalization)
  Sender: FDA-Public Use
  Company Number: US-BIOGENIDEC-2014BI080050

PATIENT
  Age: 36 Year
  Sex: Female

DRUGS (9)
  1. TECFIDERA [Suspect]
     Active Substance: DIMETHYL FUMARATE
     Indication: MULTIPLE SCLEROSIS
     Dates: start: 20130520
  2. MORPHINE [Concomitant]
     Active Substance: MORPHINE
  3. NEXIUM [Concomitant]
     Active Substance: ESOMEPRAZOLE MAGNESIUM
  4. AMITRIPTYLINE [Concomitant]
     Active Substance: AMITRIPTYLINE
  5. LYRICA [Concomitant]
     Active Substance: PREGABALIN
  6. TECFIDERA [Suspect]
     Active Substance: DIMETHYL FUMARATE
     Indication: MULTIPLE SCLEROSIS
     Dates: start: 20130901, end: 20140601
  7. TECFIDERA [Suspect]
     Active Substance: DIMETHYL FUMARATE
     Indication: MULTIPLE SCLEROSIS
     Route: 048
     Dates: start: 20130905, end: 20130911
  8. NEURONTIN [Concomitant]
     Active Substance: GABAPENTIN
  9. TECFIDERA [Suspect]
     Active Substance: DIMETHYL FUMARATE
     Indication: MULTIPLE SCLEROSIS
     Route: 048
     Dates: start: 20130912, end: 20140528

REACTIONS (14)
  - Spinal fracture [Recovered/Resolved]
  - Multiple sclerosis [Unknown]
  - Urinary tract infection [Unknown]
  - Pain [Recovered/Resolved]
  - Sudden onset of sleep [Unknown]
  - Flushing [Recovered/Resolved]
  - Road traffic accident [Recovered/Resolved]
  - Bacterial vaginosis [Unknown]
  - Faecal incontinence [Recovered/Resolved]
  - Multiple sclerosis relapse [Recovered/Resolved]
  - Abdominal pain upper [Recovered/Resolved]
  - Fatigue [Not Recovered/Not Resolved]
  - Urinary incontinence [Recovered/Resolved]
  - Insomnia [Not Recovered/Not Resolved]

NARRATIVE: CASE EVENT DATE: 2014
